FAERS Safety Report 17992402 (Version 1)
Quarter: 2020Q3

REPORT INFORMATION
  Report Type: Report from Study
  Country: BR (occurrence: BR)
  Receive Date: 20200707
  Receipt Date: 20200707
  Transmission Date: 20201103
  Serious: Yes (Other)
  Sender: FDA-Public Use
  Company Number: PHHY2017BR117669

PATIENT
  Age: 27 Year
  Sex: Male
  Weight: 77 kg

DRUGS (9)
  1. VITAMIN D [Concomitant]
     Active Substance: VITAMIN D NOS
     Indication: MULTIPLE SCLEROSIS
     Dosage: 60 MG, UNK
     Route: 065
  2. FINGOLIMOD HYDROCHLORIDE [Suspect]
     Active Substance: FINGOLIMOD HYDROCHLORIDE
     Indication: PRODUCT USED FOR UNKNOWN INDICATION
     Dosage: UNK
     Route: 065
  3. BUPROPION. [Concomitant]
     Active Substance: BUPROPION
     Indication: DEPRESSION
     Dosage: 2 DF, BID(MORNING AND EVENING )(STOP DATE WHILE THE SYMPTOMS PERSISTS)
     Route: 065
     Dates: start: 202002
  4. GILENYA [Suspect]
     Active Substance: FINGOLIMOD HYDROCHLORIDE
     Indication: MULTIPLE SCLEROSIS
     Dosage: 0.5 MG, QD(IN BREAKFAST)
     Route: 048
     Dates: start: 201408
  5. VITAMIN D [Concomitant]
     Active Substance: VITAMIN D NOS
     Dosage: 1 ML, QD
     Route: 048
     Dates: start: 201408
  6. FAMPYRA [Suspect]
     Active Substance: DALFAMPRIDINE
     Indication: LIMB DISCOMFORT
     Dosage: 10 MG, BID(IN MORNING AND IN NIGHT)
     Route: 048
  7. RITALIN [Concomitant]
     Active Substance: METHYLPHENIDATE HYDROCHLORIDE
     Indication: FATIGUE
     Dosage: 2 DF, QD
     Route: 065
     Dates: start: 2017, end: 2020
  8. VITAMIN B COMPLEX [Concomitant]
     Active Substance: CYANOCOBALAMIN\DEXPANTHENOL\NIACINAMIDE\PYRIDOXINE HYDROCHLORIDE\RIBOFLAVIN 5^-PHOSPHATE SODIUM\THIAMINE HYDROCHLORIDE\VITAMIN B COMPLEX
     Indication: MULTIPLE SCLEROSIS
     Dosage: 30 MG, UNK
     Route: 065
  9. BUPROPION. [Concomitant]
     Active Substance: BUPROPION
     Indication: IRRITABILITY

REACTIONS (8)
  - Gait disturbance [Unknown]
  - Eye disorder [Unknown]
  - Progressive multiple sclerosis [Unknown]
  - Cerebral atrophy [Unknown]
  - Secondary progressive multiple sclerosis [Unknown]
  - Malaise [Unknown]
  - Asthenia [Unknown]
  - Relapsing-remitting multiple sclerosis [Unknown]

NARRATIVE: CASE EVENT DATE: 201408
